FAERS Safety Report 26208413 (Version 1)
Quarter: 2025Q4

REPORT INFORMATION
  Report Type: Spontaneous
  Country: US (occurrence: None)
  Receive Date: 20251227
  Receipt Date: 20251227
  Transmission Date: 20260117
  Serious: Yes (Hospitalization)
  Sender: FDA-CTU
  Company Number: None

PATIENT
  Sex: Female

DRUGS (1)
  1. TEPMETKO [Suspect]
     Active Substance: TEPOTINIB HYDROCHLORIDE
     Indication: Neoplasm malignant
     Dosage: 450 MG DAILY ORAL
     Route: 048
     Dates: start: 20250607

REACTIONS (4)
  - Renal disorder [None]
  - Therapy interrupted [None]
  - Dialysis [None]
  - Lymphoedema [None]
